FAERS Safety Report 11022311 (Version 1)
Quarter: 2015Q2

REPORT INFORMATION
  Report Type: Spontaneous
  Country: US (occurrence: US)
  Receive Date: 20150413
  Receipt Date: 20150413
  Transmission Date: 20150821
  Serious: Yes (Death, Other)
  Sender: FDA-Public Use
  Company Number: US-ASTRAZENECA-2013SE64150

PATIENT
  Age: 24011 Day
  Sex: Male

DRUGS (14)
  1. AVODART [Concomitant]
     Active Substance: DUTASTERIDE
     Route: 048
     Dates: end: 20101115
  2. ZOFRAN [Concomitant]
     Active Substance: ONDANSETRON HYDROCHLORIDE
     Dosage: DISINTEGRATING TABLET TAKE 4 MG BY MOUTH EVERY EIGHT HOURS AS NEEDED
     Route: 048
     Dates: end: 20101116
  3. LANTUS [Concomitant]
     Active Substance: INSULIN GLARGINE
     Dosage: 100 UNIT/ML,INJECT 40 UNITS JUST UNDER THE SKIN ONCE A DAY.
     Route: 058
     Dates: end: 20101115
  4. INSULIN [Concomitant]
     Active Substance: INSULIN NOS
  5. BYETTA [Suspect]
     Active Substance: EXENATIDE
     Indication: TYPE 2 DIABETES MELLITUS
     Dosage: 10 MCGLO.04 ML
     Route: 058
     Dates: start: 20090430, end: 20101115
  6. OMEPRAZOLE. [Concomitant]
     Active Substance: OMEPRAZOLE
  7. VICODIN [Concomitant]
     Active Substance: ACETAMINOPHEN\HYDROCODONE BITARTRATE
     Dosage: 7.5-750 RNG ORAL PER TABLET TAKE I TAB BY MOUTH EVERY SIX HOURS, AS NEEDED.
     Route: 048
  8. GLUCOPHAGE [Concomitant]
     Active Substance: METFORMIN HYDROCHLORIDE
     Route: 048
     Dates: end: 20101115
  9. ULTRAM [Concomitant]
     Active Substance: TRAMADOL HYDROCHLORIDE
     Indication: PAIN
     Dosage: TAKE 50 MG BY MOUTH EVERY SIX HOURS, AS NEEDED
     Route: 048
     Dates: end: 20101116
  10. ACTOS [Concomitant]
     Active Substance: PIOGLITAZONE HYDROCHLORIDE
     Dosage: TAKE 45 RMG BY MOUTH ONCE A DAY. LAST DOSE:11/15/10
     Route: 048
     Dates: end: 20101115
  11. JANUVIA [Concomitant]
     Active Substance: SITAGLIPTIN PHOSPHATE
     Dates: start: 20090121, end: 20090421
  12. FOSAMAX [Concomitant]
     Active Substance: ALENDRONATE SODIUM
     Route: 048
  13. ZOCOR [Concomitant]
     Active Substance: SIMVASTATIN
     Dosage: TAKE 80 MG BY MOUTH AT BEDTIME
     Route: 048
     Dates: end: 20101115
  14. DIOVAN [Concomitant]
     Active Substance: VALSARTAN
     Dosage: TAKE 80 MG BY MOUTH ONCE A DAY AT 1 PM. LAST DOSE:11/15/10
     Route: 048
     Dates: end: 20101115

REACTIONS (2)
  - Pancreatic carcinoma [Fatal]
  - Hepatitis [Unknown]

NARRATIVE: CASE EVENT DATE: 20101111
